FAERS Safety Report 12963942 (Version 1)
Quarter: 2016Q4

REPORT INFORMATION
  Report Type: Spontaneous
  Country: JP (occurrence: JP)
  Receive Date: 20161122
  Receipt Date: 20161122
  Transmission Date: 20170207
  Serious: Yes (Life-Threatening, Hospitalization, Other)
  Sender: FDA-Public Use
  Company Number: JP-MYLANLABS-2016M1050020

PATIENT

DRUGS (2)
  1. METFORMIN [Suspect]
     Active Substance: METFORMIN HYDROCHLORIDE
     Indication: TYPE 2 DIABETES MELLITUS
     Dosage: 500 MG, BID
     Route: 048
  2. METFORMIN [Suspect]
     Active Substance: METFORMIN HYDROCHLORIDE
     Dosage: 300 METFORMIN TABLETS (TOTAL DOSE 75G)
     Route: 048

REACTIONS (5)
  - Pneumonia aspiration [Recovered/Resolved]
  - Lactic acidosis [Recovered/Resolved]
  - Hypoglycaemia [Recovered/Resolved]
  - Suicide attempt [Recovered/Resolved]
  - Overdose [Recovered/Resolved]
